FAERS Safety Report 15455027 (Version 1)
Quarter: 2018Q3

REPORT INFORMATION
  Report Type: Spontaneous
  Country: US (occurrence: US)
  Receive Date: 20180927
  Receipt Date: 20180927
  Transmission Date: 20181010
  Serious: Yes (Other)
  Sender: FDA-Public Use
  Company Number: None

PATIENT

DRUGS (1)
  1. CREST WHITENING SYSTEMS STRIPS WHITESTRIPS PROFESSIONAL WHITENING SYST [Suspect]
     Active Substance: HYDROGEN PEROXIDE

REACTIONS (4)
  - Gingival swelling [None]
  - Tooth extraction [None]
  - Gingival discomfort [None]
  - Gingival pain [None]
